FAERS Safety Report 7420432-7 (Version None)
Quarter: 2011Q2

REPORT INFORMATION
  Report Type: 
  Country: None (occurrence: None)
  Receive Date: 20110418
  Receipt Date: 20110412
  Transmission Date: 20111010
  Serious: No
  Sender: FDA-Public Use
  Company Number: US-PFIZER INC-2011080405

PATIENT
  Sex: Female
  Weight: 21.315 kg

DRUGS (3)
  1. LEVOXYL [Concomitant]
     Dosage: 25 UG, UNK
  2. GENOTROPIN [Suspect]
     Dosage: 0.9 MG, 1X/DAY
     Route: 058
  3. PREDNISONE [Concomitant]
     Dosage: 2.5 MG, UNK

REACTIONS (1)
  - INJECTION SITE PAIN [None]
